FAERS Safety Report 5951531-4 (Version None)
Quarter: 2008Q4

REPORT INFORMATION
  Report Type: 
  Country: None (occurrence: None)
  Receive Date: 20081113
  Receipt Date: 20081106
  Transmission Date: 20090506
  Serious: Yes (Life-Threatening, Hospitalization)
  Sender: FDA-Public Use
  Company Number: AU-ABBOTT-08P-008-0486041-00

PATIENT
  Sex: Female

DRUGS (5)
  1. CLARITHROMYCIN [Suspect]
     Indication: MYCOBACTERIAL INFECTION
     Dates: start: 20070813, end: 20071031
  2. AMIKACIN SULFATE [Suspect]
     Indication: MYCOBACTERIAL INFECTION
     Dates: start: 20070813, end: 20071001
  3. CEFOXITIN SODIUM [Suspect]
     Indication: MYCOBACTERIAL INFECTION
     Dates: start: 20070813, end: 20071031
  4. TEMAZEPAM [Concomitant]
     Indication: SLEEP DISORDER
  5. RANITIDINE [Concomitant]
     Indication: MYCOBACTERIAL INFECTION

REACTIONS (2)
  - RENAL FAILURE ACUTE [None]
  - TUBULOINTERSTITIAL NEPHRITIS [None]
